FAERS Safety Report 10255173 (Version 1)
Quarter: 2014Q2

REPORT INFORMATION
  Report Type: Report from Study
  Country: US (occurrence: US)
  Receive Date: 20140624
  Receipt Date: 20140624
  Transmission Date: 20141212
  Serious: Yes (Other)
  Sender: FDA-Public Use
  Company Number: US-BAYER-2014-088938

PATIENT
  Age: 88 Year
  Sex: Female

DRUGS (4)
  1. ASPIRIN [Suspect]
     Dosage: 81 MG DAILY
     Route: 048
  2. DABIGATRAN [Interacting]
     Indication: ANTICOAGULANT THERAPY
     Dosage: 150 MG, BID
     Route: 048
  3. DABIGATRAN [Interacting]
     Indication: ATRIAL FIBRILLATION
  4. MELOXICAM [Interacting]
     Dosage: 15 MG DAILY
     Route: 048

REACTIONS (2)
  - Pericardial haemorrhage [None]
  - Drug interaction [None]
